FAERS Safety Report 9289010 (Version 1)
Quarter: 2013Q2

REPORT INFORMATION
  Report Type: Spontaneous
  Country: US (occurrence: None)
  Receive Date: 20130509
  Receipt Date: 20130509
  Transmission Date: 20140414
  Serious: Yes (Life-Threatening, Hospitalization)
  Sender: FDA-Public Use
  Company Number: 1702636

PATIENT
  Age: 64 Year
  Sex: Male

DRUGS (1)
  1. (PROPOFOL) [Suspect]
     Indication: INDUCTION OF ANAESTHESIA
     Route: 042

REACTIONS (6)
  - Sinus tachycardia [None]
  - Atrioventricular block complete [None]
  - Pulmonary oedema [None]
  - Ejection fraction [None]
  - Cardiogenic shock [None]
  - Renal failure [None]
